FAERS Safety Report 4522693-0 (Version None)
Quarter: 2004Q4

REPORT INFORMATION
  Report Type: 
  Country: None (occurrence: None)
  Receive Date: 20041207
  Receipt Date: 20041130
  Transmission Date: 20050328
  Serious: Yes (Life-Threatening)
  Sender: FDA-Public Use
  Company Number: NUBN20040025

PATIENT
  Age: 7 Year
  Sex: Male
  Weight: 20 kg

DRUGS (8)
  1. NUBAIN [Suspect]
     Indication: BURKITT'S LYMPHOMA
     Dosage: 24 MG DAILY IV
     Route: 042
     Dates: start: 20040925, end: 20041011
  2. METHOTREXATE LYOPHILISATE [Suspect]
     Indication: BURKITT'S LYMPHOMA
     Dosage: 2.65 G DAILY IV
     Route: 042
     Dates: start: 20040919, end: 20040920
  3. ZOVIRAX [Suspect]
     Indication: BURKITT'S LYMPHOMA
     Dosage: 450 MG DAILY IV
     Route: 042
     Dates: start: 20040926, end: 20040930
  4. TAZOCILLINE        (PIPERACILLIN/TAZOBACTAM [Concomitant]
  5. AMIKILIN (AMIKACIN) [Concomitant]
  6. VANCOMYCIN [Concomitant]
  7. AMBISOME [Concomitant]
  8. ONCOVIN [Concomitant]

REACTIONS (5)
  - CONVULSION [None]
  - ENCEPHALITIS TOXIC [None]
  - FEBRILE BONE MARROW APLASIA [None]
  - HYPONATRAEMIA [None]
  - LOSS OF CONSCIOUSNESS [None]
